FAERS Safety Report 23944212 (Version 2)
Quarter: 2025Q4

REPORT INFORMATION
  Report Type: Report from Study
  Country: JP (occurrence: JP)
  Receive Date: 20240606
  Receipt Date: 20251216
  Transmission Date: 20260118
  Serious: Yes (Death)
  Sender: AKEBIA THERAPEUTICS
  Company Number: JP-MTPC-MTPC2021-0030321

PATIENT
  Age: 85 Year
  Sex: Male
  Weight: 72.1 kg

DRUGS (5)
  1. VADADUSTAT [Suspect]
     Active Substance: VADADUSTAT
     Indication: Nephrogenic anaemia
     Dosage: 300 MILLIGRAM, QD
     Route: 048
     Dates: start: 20211007, end: 20211215
  2. DARBEPOETIN ALFA [Concomitant]
     Active Substance: DARBEPOETIN ALFA
     Indication: Nephrogenic anaemia
     Dosage: 60 MICROGRAM, MONTHLY
     Route: 058
     Dates: end: 20210826
  3. BISOPROLOL FUMARATE [Concomitant]
     Active Substance: BISOPROLOL FUMARATE
     Indication: Product used for unknown indication
     Dosage: 2.5 MILLIGRAM, QD
     Route: 048
  4. URSODIOL [Concomitant]
     Active Substance: URSODIOL
     Indication: Illness
     Dosage: 300 MILLIGRAM, QD
     Route: 048
     Dates: end: 20211215
  5. TOPIROXOSTAT [Concomitant]
     Active Substance: TOPIROXOSTAT
     Indication: Illness
     Dosage: 40 MILLIGRAM, QD
     Route: 048
     Dates: end: 20211215

REACTIONS (2)
  - Sepsis [Fatal]
  - Cholangitis [Fatal]

NARRATIVE: CASE EVENT DATE: 20211116
